FAERS Safety Report 20905498 (Version 2)
Quarter: 2022Q2

REPORT INFORMATION
  Report Type: Spontaneous
  Country: ES (occurrence: ES)
  Receive Date: 20220602
  Receipt Date: 20220602
  Transmission Date: 20220721
  Serious: Yes (Other)
  Sender: FDA-Public Use
  Company Number: ES-PFIZER INC-202200751375

PATIENT
  Age: 35 Year
  Sex: Male
  Weight: 80 kg

DRUGS (4)
  1. MEROPENEM [Suspect]
     Active Substance: MEROPENEM
     Indication: Central nervous system infection
     Dosage: 2000 MG Q8H IN A 4H EXTENDED INFUSION
     Route: 042
  2. MEROPENEM [Suspect]
     Active Substance: MEROPENEM
     Indication: Bacterial infection
  3. LINEZOLID [Concomitant]
     Active Substance: LINEZOLID
     Indication: Central nervous system infection
     Dosage: 600 MG Q12H
     Route: 042
  4. LINEZOLID [Concomitant]
     Active Substance: LINEZOLID
     Indication: Bacterial infection

REACTIONS (2)
  - CNS ventriculitis [Unknown]
  - Drug resistance [Unknown]
